FAERS Safety Report 5737935-3 (Version None)
Quarter: 2008Q2

REPORT INFORMATION
  Report Type: 
  Country: None (occurrence: None)
  Receive Date: 20080514
  Receipt Date: 20080507
  Transmission Date: 20081010
  Serious: Yes (Hospitalization)
  Sender: FDA-Public Use
  Company Number: US-ALLERGAN-0805189US

PATIENT
  Sex: Female
  Weight: 70 kg

DRUGS (3)
  1. BOTOX [Suspect]
     Indication: DYSTONIA
     Dosage: 200 UNITS, SINGLE
     Route: 030
     Dates: start: 20080425, end: 20080425
  2. BOTOX [Suspect]
     Dosage: 50 UNITS, SINGLE
     Route: 030
     Dates: start: 20071106, end: 20071106
  3. BOTOX [Suspect]
     Dosage: 80 UNITS, SINGLE
     Route: 030
     Dates: start: 20080125, end: 20080125

REACTIONS (5)
  - DRUG INEFFECTIVE [None]
  - ERYTHEMA [None]
  - FEELING OF BODY TEMPERATURE CHANGE [None]
  - OEDEMA PERIPHERAL [None]
  - PAIN IN EXTREMITY [None]
